FAERS Safety Report 6372550-2 (Version None)
Quarter: 2009Q3

REPORT INFORMATION
  Report Type: 
  Country: None (occurrence: None)
  Receive Date: 20090924
  Receipt Date: 20080924
  Transmission Date: 20100115
  Serious: Yes (Hospitalization)
  Sender: FDA-Public Use
  Company Number: US-ASTRAZENECA-2008UW20136

PATIENT
  Age: 7 Year
  Sex: Male

DRUGS (1)
  1. SEROQUEL [Suspect]
     Dosage: 50 MG DAY 1, 100 MG DAY 2, 200 MG DAY 3, 300 MG DAY 4
     Route: 048

REACTIONS (4)
  - DYSKINESIA [None]
  - HALLUCINATION, TACTILE [None]
  - HALLUCINATION, VISUAL [None]
  - PSYCHOTIC DISORDER [None]
